FAERS Safety Report 10144556 (Version 1)
Quarter: 2014Q2

REPORT INFORMATION
  Report Type: Spontaneous
  Country: US (occurrence: US)
  Receive Date: 20140430
  Receipt Date: 20140430
  Transmission Date: 20141212
  Serious: No
  Sender: FDA-Public Use
  Company Number: US-SA-2014SA035483

PATIENT
  Sex: Female

DRUGS (1)
  1. ENOXAPARIN SODIUM - WINTHROP [Suspect]
     Indication: CARDIOVASCULAR DISORDER
     Dosage: STRENGTH: 60 MG
     Route: 065
     Dates: start: 2014

REACTIONS (1)
  - Peripheral swelling [Not Recovered/Not Resolved]
